FAERS Safety Report 9103981 (Version 2)
Quarter: 2013Q3

REPORT INFORMATION
  Report Type: Report from Study
  Country: BR (occurrence: BR)
  Receive Date: 20130219
  Receipt Date: 20130722
  Transmission Date: 20140515
  Serious: Yes (Hospitalization, Disabling, Other)
  Sender: FDA-Public Use
  Company Number: BR-BAYER-2013-016377

PATIENT
  Age: 36 Year
  Sex: Female

DRUGS (5)
  1. BETAFERON [Suspect]
     Indication: RELAPSING-REMITTING MULTIPLE SCLEROSIS
     Dosage: 1 ML, QOD
     Route: 058
     Dates: start: 20120904
  2. MANTADAN [Concomitant]
     Indication: PRODUCT USED FOR UNKNOWN INDICATION
     Dosage: 2 DF, QD
     Route: 048
     Dates: start: 201210
  3. HYDROXYZINE [Concomitant]
     Indication: MULTIPLE ALLERGIES
     Dosage: 10 ML, PRN
     Route: 048
  4. HYDROXYZINE [Concomitant]
     Indication: MULTIPLE ALLERGIES
     Dosage: 1 DF, PRN
     Route: 048
  5. PREDNISONE [Concomitant]
     Indication: MULTIPLE ALLERGIES
     Dosage: 20 MG, PRN
     Route: 048

REACTIONS (27)
  - Eye pain [Recovering/Resolving]
  - Headache [Recovering/Resolving]
  - Muscular weakness [Recovering/Resolving]
  - Paraesthesia [None]
  - Joint range of motion decreased [Recovered/Resolved]
  - Musculoskeletal disorder [Recovered/Resolved]
  - Inappropriate schedule of drug administration [None]
  - Dyspnoea [Not Recovered/Not Resolved]
  - Cough [Not Recovered/Not Resolved]
  - Musculoskeletal disorder [Not Recovered/Not Resolved]
  - Pain in extremity [Not Recovered/Not Resolved]
  - Neurogenic bladder [Not Recovered/Not Resolved]
  - Micturition urgency [Not Recovered/Not Resolved]
  - Urinary retention [Not Recovered/Not Resolved]
  - Viral infection [Recovered/Resolved]
  - Diarrhoea [Recovered/Resolved]
  - Vomiting [Recovered/Resolved]
  - Pyrexia [Recovered/Resolved]
  - Abdominal pain upper [Recovered/Resolved]
  - Uterine mass [Not Recovered/Not Resolved]
  - Uterine haemorrhage [Recovering/Resolving]
  - Anaemia [Not Recovered/Not Resolved]
  - Weight decreased [Not Recovered/Not Resolved]
  - Feeling abnormal [Not Recovered/Not Resolved]
  - Blood glucose increased [None]
  - Injection site haematoma [Not Recovered/Not Resolved]
  - Varicose vein [Not Recovered/Not Resolved]
